FAERS Safety Report 8511313-6 (Version None)
Quarter: 2012Q3

REPORT INFORMATION
  Report Type: 
  Country: None (occurrence: None)
  Receive Date: 20120716
  Receipt Date: 20120710
  Transmission Date: 20120928
  Serious: Yes (Hospitalization)
  Sender: FDA-Public Use
  Company Number: US-JNJFOC-20120706241

PATIENT
  Sex: Male
  Weight: 46.2 kg

DRUGS (8)
  1. METHOTREXATE [Concomitant]
  2. NEXIUM [Concomitant]
  3. FERRLECIT [Concomitant]
  4. PERIACTIN [Concomitant]
  5. FOLIC ACID [Concomitant]
  6. ANTIBIOTICS [Concomitant]
     Indication: INFLAMMATORY BOWEL DISEASE
  7. ZOFRAN [Concomitant]
  8. REMICADE [Suspect]
     Indication: CROHN'S DISEASE
     Route: 042
     Dates: start: 20110929

REACTIONS (1)
  - SMALL INTESTINAL OBSTRUCTION [None]
